FAERS Safety Report 9072908 (Version 1)
Quarter: 2013Q1

REPORT INFORMATION
  Report Type: Spontaneous
  Country: US (occurrence: US)
  Receive Date: 20130129
  Receipt Date: 20130129
  Transmission Date: 20140127
  Serious: No
  Sender: FDA-Public Use
  Company Number: US-ABBOTT-12P-163-0923707-00

PATIENT
  Age: 69 Year
  Sex: Female

DRUGS (2)
  1. HUMIRA 40 MG/0.8 ML PEN [Suspect]
     Indication: RHEUMATOID ARTHRITIS
     Dates: start: 2011
  2. ALEVE [Suspect]
     Indication: HEADACHE
     Dates: start: 20120405, end: 20120405

REACTIONS (7)
  - Rash macular [Unknown]
  - Pruritus [Unknown]
  - Application site pustules [Unknown]
  - Headache [Unknown]
  - Pruritus [Unknown]
  - Lip swelling [Unknown]
  - Drug interaction [Unknown]
